FAERS Safety Report 12726660 (Version 1)
Quarter: 2016Q3

REPORT INFORMATION
  Report Type: Report from Study
  Country: SG (occurrence: SG)
  Receive Date: 20160908
  Receipt Date: 20160908
  Transmission Date: 20161109
  Serious: Yes (Hospitalization, Other)
  Sender: FDA-Public Use
  Company Number: SG-GILEAD-2016-0231368

PATIENT
  Age: 56 Year
  Sex: Female

DRUGS (9)
  1. TAMOXIFEN [Concomitant]
     Active Substance: TAMOXIFEN
  2. ENTECAVIR. [Concomitant]
     Active Substance: ENTECAVIR
     Dosage: 1 MG, QD
     Dates: start: 201304
  3. TENOFOVIR DISOPROXIL FUMARATE. [Suspect]
     Active Substance: TENOFOVIR DISOPROXIL FUMARATE
     Dosage: 300 MG, QOD
     Route: 048
     Dates: start: 201410
  4. GLIPIZIDE. [Concomitant]
     Active Substance: GLIPIZIDE
  5. ADEFOVIR DIPIVOXIL. [Suspect]
     Active Substance: ADEFOVIR DIPIVOXIL
     Indication: HEPATITIS B
     Route: 065
  6. LAMIVUDINE. [Concomitant]
     Active Substance: LAMIVUDINE
     Dosage: 100 MG, QD
     Dates: start: 201211, end: 201305
  7. TENOFOVIR DISOPROXIL FUMARATE. [Suspect]
     Active Substance: TENOFOVIR DISOPROXIL FUMARATE
     Indication: HEPATITIS B
     Dosage: 300 MG, QD
     Route: 048
     Dates: start: 201208, end: 201311
  8. METFORMIN [Concomitant]
     Active Substance: METFORMIN HYDROCHLORIDE
  9. LOSARTAN. [Concomitant]
     Active Substance: LOSARTAN

REACTIONS (4)
  - Hypokalaemia [Unknown]
  - Foot fracture [Unknown]
  - Fanconi syndrome acquired [Not Recovered/Not Resolved]
  - Rhabdomyolysis [Unknown]

NARRATIVE: CASE EVENT DATE: 201208
